FAERS Safety Report 14331286 (Version 2)
Quarter: 2018Q1

REPORT INFORMATION
  Report Type: Spontaneous
  Country: FR (occurrence: FR)
  Receive Date: 20171228
  Receipt Date: 20180227
  Transmission Date: 20180509
  Serious: Yes (Hospitalization)
  Sender: FDA-Public Use
  Company Number: FR-ROCHE-2043583

PATIENT
  Age: 47 Year
  Sex: Female
  Weight: 95 kg

DRUGS (12)
  1. ROACTEMRA [Suspect]
     Active Substance: TOCILIZUMAB
     Route: 042
     Dates: start: 20171116, end: 20171117
  2. ROACTEMRA [Suspect]
     Active Substance: TOCILIZUMAB
     Route: 042
     Dates: start: 20180111
  3. ROACTEMRA [Suspect]
     Active Substance: TOCILIZUMAB
     Route: 042
     Dates: start: 20171019
  4. SPECIAFOLDINE [Concomitant]
     Active Substance: FOLIC ACID
     Route: 048
  5. DOLIPRANE [Concomitant]
     Active Substance: ACETAMINOPHEN
     Route: 065
  6. ROACTEMRA [Suspect]
     Active Substance: TOCILIZUMAB
     Route: 042
     Dates: start: 20171214, end: 20171215
  7. EUPANTOL [Concomitant]
     Active Substance: PANTOPRAZOLE SODIUM
     Route: 065
  8. ROACTEMRA [Suspect]
     Active Substance: TOCILIZUMAB
     Indication: RHEUMATOID ARTHRITIS
     Dosage: TREATED FOR 2 YEARS
     Route: 042
     Dates: start: 2014
  9. LOXEN 20 MG [Concomitant]
     Active Substance: NICARDIPINE HYDROCHLORIDE
     Route: 065
  10. FUMAFER [Concomitant]
     Active Substance: FERROUS FUMARATE
     Route: 065
  11. METHOTREXATE. [Concomitant]
     Active Substance: METHOTREXATE
     Route: 058
  12. KARDEGIC [Concomitant]
     Active Substance: ASPIRIN DL-LYSINE
     Route: 065

REACTIONS (5)
  - Paraesthesia [Recovered/Resolved]
  - Pyrexia [Unknown]
  - Nausea [Unknown]
  - Hypertensive crisis [Recovered/Resolved]
  - Tremor [Unknown]

NARRATIVE: CASE EVENT DATE: 20171019
